FAERS Safety Report 23576484 (Version 1)
Quarter: 2024Q1

REPORT INFORMATION
  Report Type: Spontaneous
  Country: US (occurrence: US)
  Receive Date: 20240228
  Receipt Date: 20240228
  Transmission Date: 20240410
  Serious: No
  Sender: FDA-Public Use
  Company Number: US-UPSHER-SMITH LABORATORIES, LLC-2023USL00672

PATIENT
  Age: 19 Year

DRUGS (3)
  1. MYORISAN [Suspect]
     Active Substance: ISOTRETINOIN
  2. CLARAVIS [Suspect]
     Active Substance: ISOTRETINOIN
     Dosage: 40 MG, 1X/DAY
  3. CLARAVIS [Suspect]
     Active Substance: ISOTRETINOIN
     Dosage: 40 MG, 2X/DAY

REACTIONS (12)
  - Acne cystic [Unknown]
  - Acne [Unknown]
  - Scar [Unknown]
  - Post inflammatory pigmentation change [Unknown]
  - Low density lipoprotein increased [Recovering/Resolving]
  - Alopecia [Unknown]
  - Xerosis [Unknown]
  - Blood cholesterol increased [Recovered/Resolved]
  - Blood triglycerides increased [Recovered/Resolved]
  - High density lipoprotein decreased [Recovered/Resolved]
  - Unevaluable event [Unknown]
  - Product dose omission issue [Recovered/Resolved]

NARRATIVE: CASE EVENT DATE: 20211004
